FAERS Safety Report 18028180 (Version 5)
Quarter: 2020Q4

REPORT INFORMATION
  Report Type: Report from Study
  Country: US (occurrence: US)
  Receive Date: 20200716
  Receipt Date: 20201216
  Transmission Date: 20210113
  Serious: No
  Sender: FDA-Public Use
  Company Number: US-LUNDBECK-DKLU3018481

PATIENT
  Age: 51 Year
  Sex: Female

DRUGS (3)
  1. AJOVY [Concomitant]
     Active Substance: FREMANEZUMAB-VFRM
     Indication: PRODUCT USED FOR UNKNOWN INDICATION
     Route: 065
  2. VYEPTI [Suspect]
     Active Substance: EPTINEZUMAB-JJMR
     Route: 065
     Dates: start: 202006
  3. VYEPTI [Suspect]
     Active Substance: EPTINEZUMAB-JJMR
     Indication: MIGRAINE
     Route: 042
     Dates: start: 20200702

REACTIONS (11)
  - Drug ineffective [Unknown]
  - Anxiety [Recovering/Resolving]
  - Therapeutic response decreased [Unknown]
  - Burning sensation [Recovered/Resolved]
  - Insomnia [Recovering/Resolving]
  - Migraine [Not Recovered/Not Resolved]
  - Sneezing [Recovering/Resolving]
  - Therapeutic response shortened [Unknown]
  - Nausea [Recovering/Resolving]
  - Fatigue [Unknown]
  - Condition aggravated [Unknown]

NARRATIVE: CASE EVENT DATE: 202007
